FAERS Safety Report 20655824 (Version 1)
Quarter: 2022Q1

REPORT INFORMATION
  Report Type: Spontaneous
  Country: JP (occurrence: JP)
  Receive Date: 20220330
  Receipt Date: 20220330
  Transmission Date: 20220423
  Serious: Yes (Hospitalization, Other)
  Sender: FDA-Public Use
  Company Number: JP-TAKEDA-2022TJP031774

PATIENT
  Age: 8 Decade

DRUGS (1)
  1. ADCETRIS [Suspect]
     Active Substance: BRENTUXIMAB VEDOTIN
     Indication: Hodgkin^s disease
     Dosage: 1.8 MILLIGRAM/KILOGRAM, Q2WEEKS
     Route: 041
     Dates: start: 20210708

REACTIONS (4)
  - Cardiac failure [Recovering/Resolving]
  - Interstitial lung disease [Recovering/Resolving]
  - Overdose [Unknown]
  - Off label use [Unknown]

NARRATIVE: CASE EVENT DATE: 20210708
